FAERS Safety Report 5460355-6 (Version None)
Quarter: 2007Q3

REPORT INFORMATION
  Report Type: 
  Country: None (occurrence: None)
  Receive Date: 20070919
  Receipt Date: 20070628
  Transmission Date: 20080115
  Serious: Yes (Other)
  Sender: FDA-Public Use
  Company Number: US-ASTRAZENECA-2007UW15381

PATIENT
  Age: 85 Year
  Sex: Female

DRUGS (3)
  1. SEROQUEL [Suspect]
     Route: 048
     Dates: start: 20061001, end: 20070601
  2. NAMENDA [Concomitant]
  3. THYROID TAB [Concomitant]

REACTIONS (5)
  - CONFUSIONAL STATE [None]
  - COORDINATION ABNORMAL [None]
  - DROOLING [None]
  - DRY MOUTH [None]
  - TARDIVE DYSKINESIA [None]
